FAERS Safety Report 12843506 (Version 1)
Quarter: 2016Q4

REPORT INFORMATION
  Report Type: Spontaneous
  Country: SK (occurrence: SK)
  Receive Date: 20161013
  Receipt Date: 20161013
  Transmission Date: 20170207
  Serious: Yes (Life-Threatening, Hospitalization)
  Sender: FDA-Public Use
  Company Number: SK-TEVA-702500ISR

PATIENT
  Age: 36 Year
  Sex: Female

DRUGS (3)
  1. OMEPRAZOL [Suspect]
     Active Substance: OMEPRAZOLE
     Indication: GASTRIC ULCER
     Route: 048
     Dates: start: 20160811, end: 20160814
  2. AZATRIL [Suspect]
     Active Substance: AZITHROMYCIN DIHYDRATE
     Indication: COUGH
     Dosage: 500 MILLIGRAM DAILY;
     Route: 048
     Dates: start: 20160811, end: 20160814
  3. PREDNISON [Suspect]
     Active Substance: PREDNISONE
     Indication: COUGH
     Route: 048
     Dates: start: 20160811, end: 20160814

REACTIONS (3)
  - Pharyngeal oedema [Recovered/Resolved]
  - Rash pruritic [Recovered/Resolved]
  - Dyspnoea [Recovered/Resolved]

NARRATIVE: CASE EVENT DATE: 20160815
